FAERS Safety Report 5591233-X (Version None)
Quarter: 2008Q1

REPORT INFORMATION
  Report Type: 
  Country: None (occurrence: None)
  Receive Date: 20080110
  Receipt Date: 20080110
  Transmission Date: 20080703
  Serious: Yes (Hospitalization)
  Sender: FDA-Public Use
  Company Number: None

PATIENT
  Age: 57 Year
  Sex: Female
  Weight: 54.4316 kg

DRUGS (2)
  1. ESTRATEST [Suspect]
  2. PREMARIN [Suspect]

REACTIONS (1)
  - DEEP VEIN THROMBOSIS [None]
